FAERS Safety Report 9415727 (Version 3)
Quarter: 2014Q3

REPORT INFORMATION
  Report Type: Spontaneous
  Country: DK (occurrence: DK)
  Receive Date: 20130723
  Receipt Date: 20140905
  Transmission Date: 20150326
  Serious: Yes (Hospitalization)
  Sender: FDA-Public Use
  Company Number: DK-MERCK-1307DNK011261

PATIENT
  Age: 29 Year
  Sex: Male
  Weight: 67 kg

DRUGS (1)
  1. SINGULAIR [Suspect]
     Active Substance: MONTELUKAST SODIUM
     Indication: ASTHMA
     Dosage: STYRKE: 10 MG.
     Route: 048
     Dates: start: 20060814, end: 20130418

REACTIONS (9)
  - Arthralgia [Recovered/Resolved]
  - Amnesia [Recovered/Resolved]
  - Fatigue [Recovered/Resolved]
  - Muscle tightness [Recovered/Resolved]
  - Muscle spasms [Recovered/Resolved]
  - Depression [Recovered/Resolved]
  - Claustrophobia [Recovered/Resolved]
  - Insomnia [Recovered/Resolved]
  - Suicide attempt [Recovered/Resolved]

NARRATIVE: CASE EVENT DATE: 20121028
